FAERS Safety Report 5349161-0 (Version None)
Quarter: 2007Q2

REPORT INFORMATION
  Report Type: 
  Country: None (occurrence: None)
  Receive Date: 20070607
  Receipt Date: 20070525
  Transmission Date: 20071010
  Serious: Yes (Disabling, Other)
  Sender: FDA-Public Use
  Company Number: US-KINGPHARMUSA00001-K200700642

PATIENT

DRUGS (18)
  1. ALTACE [Suspect]
     Indication: HYPERTENSION
     Dosage: 1.25 MG, QD
     Route: 048
     Dates: start: 20070309, end: 20070316
  2. ALTACE [Suspect]
     Indication: PROPHYLAXIS
  3. CARBOCISTEINE [Concomitant]
     Dosage: 1500 MG, UNK
     Route: 048
  4. CETIRIZINE HCL [Concomitant]
     Dosage: 10 MG, UNK
     Route: 048
  5. FERROUS SULFATE [Concomitant]
     Indication: ANAEMIA
     Dosage: 600 MG, UNK
     Route: 048
  6. FUROSEMIDE [Concomitant]
     Indication: DIURETIC THERAPY
     Dosage: 40 MG, UNK
     Route: 048
  7. IPRATROPIUM BROMIDE [Concomitant]
     Dosage: 500 UG, UNK
     Dates: end: 20070416
  8. LACTULOSE [Concomitant]
     Dosage: 20 ML, UNK
     Route: 048
  9. LANSOPRAZOLE [Concomitant]
     Indication: GASTRIC DISORDER
     Dosage: 30 MG, UNK
  10. NOVOMIX   /01475801/ [Concomitant]
     Dosage: 20 IU, UNK
  11. NOVORAPID [Concomitant]
     Indication: DIABETES MELLITUS
     Dosage: 10 IU, UNK
  12. PREDNISOLON /00016201/ [Concomitant]
     Indication: RESPIRATORY DISORDER
     Dosage: 20 MG, UNK
     Route: 048
  13. QUININE SULFATE [Concomitant]
     Indication: MUSCLE SPASMS
     Dosage: 200 MG, UNK
     Route: 048
  14. SALBUTAMOL [Concomitant]
     Indication: RESPIRATORY DISORDER
     Dosage: 5 UG, UNK
     Dates: start: 20070227, end: 20070416
  15. SENNA   /00142201/ [Concomitant]
     Dosage: 8 DF, UNK
     Route: 048
  16. SERETIDE   /01420901/ [Concomitant]
     Indication: RESPIRATORY DISORDER
     Dosage: 2 DF, QID
     Route: 048
  17. SIMVASTATIN [Concomitant]
     Indication: BLOOD CHOLESTEROL INCREASED
     Dosage: 40 MG, UNK
     Route: 048
  18. THEOPHYLLINE [Concomitant]
     Indication: RESPIRATORY DISORDER
     Dosage: 500 MG, UNK
     Route: 048

REACTIONS (2)
  - AGITATION [None]
  - INSOMNIA [None]
